FAERS Safety Report 4632313-2 (Version None)
Quarter: 2005Q2

REPORT INFORMATION
  Report Type: 
  Country: None (occurrence: None)
  Receive Date: 20050331
  Receipt Date: 20040519
  Transmission Date: 20051028
  Serious: Yes (Other)
  Sender: FDA-Public Use
  Company Number: 200412489BCC

PATIENT
  Age: 81 Year
  Sex: Female
  Weight: 49.8957 kg

DRUGS (4)
  1. ALEVE (CAPLET) [Suspect]
     Indication: ARTHRITIS
     Dosage: 220 MG, QD, ORAL
     Route: 048
     Dates: end: 20040518
  2. ASPIRIN [Suspect]
     Dosage: ORAL
     Route: 048
  3. PREMARIN [Concomitant]
  4. VIOXX [Concomitant]

REACTIONS (2)
  - GASTROINTESTINAL HAEMORRHAGE [None]
  - HAEMATOCHEZIA [None]
